FAERS Safety Report 24613701 (Version 1)
Quarter: 2024Q4

REPORT INFORMATION
  Report Type: Report from Study
  Country: US (occurrence: US)
  Receive Date: 20241113
  Receipt Date: 20241113
  Transmission Date: 20250114
  Serious: Yes (Other)
  Sender: ALEXION PHARMACEUTICALS
  Company Number: US-AstraZeneca-CH-00742537A

PATIENT

DRUGS (4)
  1. LYNPARZA [Suspect]
     Active Substance: OLAPARIB
     Route: 065
  2. LYNPARZA [Suspect]
     Active Substance: OLAPARIB
  3. LYNPARZA [Suspect]
     Active Substance: OLAPARIB
     Route: 065
  4. LYNPARZA [Suspect]
     Active Substance: OLAPARIB

REACTIONS (7)
  - Recurrent cancer [Unknown]
  - Bone cancer [Unknown]
  - Deafness [Unknown]
  - Oesophageal disorder [Recovering/Resolving]
  - Pain [Recovered/Resolved]
  - Speech disorder [Recovering/Resolving]
  - Nerve compression [Recovered/Resolved]
